FAERS Safety Report 5146788-6 (Version None)
Quarter: 2006Q4

REPORT INFORMATION
  Report Type: 
  Country: None (occurrence: None)
  Receive Date: 20061107
  Receipt Date: 20061107
  Transmission Date: 20070319
  Serious: Yes (Hospitalization)
  Sender: FDA-Public Use
  Company Number: None

PATIENT
  Age: 46 Year
  Sex: Female
  Weight: 73 kg

DRUGS (4)
  1. ORTHO-NOVUM 1/35 [Suspect]
     Indication: METRORRHAGIA
     Dosage: 1 TABLET THREE TIMES DAILY PO
     Route: 048
  2. IRON [Concomitant]
  3. MULTI-VITAMIN [Concomitant]
  4. IBUPROFEN [Concomitant]

REACTIONS (4)
  - COAGULOPATHY [None]
  - MENORRHAGIA [None]
  - MYOCARDIAL INFARCTION [None]
  - PULMONARY EMBOLISM [None]
